FAERS Safety Report 7120174-1 (Version None)
Quarter: 2010Q4

REPORT INFORMATION
  Report Type: 
  Country: None (occurrence: None)
  Receive Date: 20101123
  Receipt Date: 20101115
  Transmission Date: 20110411
  Serious: Yes (Hospitalization)
  Sender: FDA-Public Use
  Company Number: CA-ABBOTT-10P-028-0659652-00

PATIENT
  Sex: Female

DRUGS (10)
  1. HUMIRA [Suspect]
     Indication: CROHN'S DISEASE
     Dosage: 160 MG (BASELINE)/80 MG (WEEK 2)
     Route: 058
     Dates: start: 20080806, end: 20100310
  2. NEXIUM [Concomitant]
     Indication: GASTROOESOPHAGEAL REFLUX DISEASE
     Dates: start: 20080716
  3. BUDESONIDE [Concomitant]
     Indication: CROHN'S DISEASE
     Dates: start: 20080716
  4. SYNTHROID [Concomitant]
     Indication: HYPOTHYROIDISM
     Dates: start: 19950101, end: 20090201
  5. SYNTHROID [Concomitant]
     Dates: start: 20090201
  6. LORAZEPAM [Concomitant]
     Indication: INSOMNIA
     Dates: start: 20080601
  7. REACTINE [Concomitant]
     Indication: RASH
     Dates: start: 20090201
  8. SWINE FLU VACCINATION MONOVALENT [Concomitant]
     Indication: PROPHYLAXIS
     Dates: start: 20091101, end: 20091101
  9. SWINE FLU VACCINATION MONOVALENT [Concomitant]
     Indication: H1N1 INFLUENZA
  10. INFLUENZA [Concomitant]
     Indication: ANTIVIRAL PROPHYLAXIS
     Dates: start: 20091101, end: 20091101

REACTIONS (2)
  - ANAL FISTULA [None]
  - CROHN'S DISEASE [None]
